FAERS Safety Report 9915100 (Version 1)
Quarter: 2014Q1

REPORT INFORMATION
  Report Type: Report from Study
  Country: IT (occurrence: IT)
  Receive Date: 20140220
  Receipt Date: 20140220
  Transmission Date: 20141002
  Serious: Yes (Hospitalization)
  Sender: FDA-Public Use
  Company Number: IT-ASTRAZENECA-2014SE11102

PATIENT
  Age: 84 Year
  Sex: Male

DRUGS (5)
  1. STUDY PROCEDURE [Suspect]
     Indication: ACUTE CORONARY SYNDROME
  2. TICAGRELOR [Suspect]
     Indication: ACUTE CORONARY SYNDROME
     Route: 048
     Dates: start: 20131115
  3. ASPIRIN [Suspect]
     Indication: ACUTE CORONARY SYNDROME
     Route: 048
     Dates: start: 20131114
  4. AMLODIPINE [Concomitant]
  5. CLOPIDOGREL [Concomitant]
     Dates: start: 20131114

REACTIONS (1)
  - Acute myocardial infarction [Recovered/Resolved]
